FAERS Safety Report 9271812 (Version 1)
Quarter: 2013Q2

REPORT INFORMATION
  Report Type: Spontaneous
  Country: US (occurrence: US)
  Receive Date: 20130506
  Receipt Date: 20130506
  Transmission Date: 20140414
  Serious: No
  Sender: FDA-Public Use
  Company Number: US-PFIZER INC-2013136904

PATIENT
  Age: 63 Year
  Sex: Female
  Weight: 58.96 kg

DRUGS (5)
  1. EFFEXOR XR [Suspect]
     Indication: DEPRESSION
     Dosage: 37.5 MG, DAILY
     Route: 048
  2. EFFEXOR XR [Suspect]
     Dosage: 37.5MG TWO CAPSULES A DAILY
     Route: 048
  3. EFFEXOR XR [Suspect]
     Dosage: 37.5MG THREE CAPSULES DAILY
     Route: 048
  4. EFFEXOR XR [Suspect]
     Dosage: 37.5 MG, DAILY
     Route: 048
  5. LAMICTAL [Concomitant]
     Indication: ANXIETY
     Dosage: 150 MG, DAILY
     Route: 048

REACTIONS (4)
  - Malaise [Recovered/Resolved]
  - Feeling abnormal [Recovered/Resolved]
  - Tremor [Recovered/Resolved]
  - Chills [Recovered/Resolved]
